FAERS Safety Report 5139642-7 (Version None)
Quarter: 2006Q4

REPORT INFORMATION
  Report Type: 
  Country: None (occurrence: None)
  Receive Date: 20061023
  Receipt Date: 20061011
  Transmission Date: 20070319
  Serious: Yes (Hospitalization)
  Sender: FDA-Public Use
  Company Number: 13484977

PATIENT
  Age: 32 Year
  Sex: Male

DRUGS (6)
  1. MODITEN                           (FLUPHENAZINE HCL) [Suspect]
     Indication: BIPOLAR DISORDER
     Dosage: 25 MILLIGRAM, ORAL
     Route: 048
  2. REVIA [Suspect]
     Indication: BIPOLAR DISORDER
     Dosage: 50 MILLIGRAM, ORAL
     Route: 048
  3. DEPAKOTE [Suspect]
     Indication: ALCOHOLISM
     Dosage: 250MG
     Route: 048
  4. DOLIPRANE                                    (ACETAMINOPHEN) [Suspect]
  5. PAROXETINE HCL [Suspect]
  6. RISPERDAL [Suspect]

REACTIONS (3)
  - NEUTROPENIA [None]
  - PLATELET COUNT DECREASED [None]
  - THROMBOCYTOPENIA [None]
